FAERS Safety Report 13243205 (Version 1)
Quarter: 2017Q1

REPORT INFORMATION
  Report Type: Spontaneous
  Country: US (occurrence: US)
  Receive Date: 20170217
  Receipt Date: 20170217
  Transmission Date: 20170428
  Serious: Yes (Other)
  Sender: FDA-Public Use
  Company Number: US-NOVOPROD-503534

PATIENT
  Age: 49 Year
  Sex: Female

DRUGS (1)
  1. VICTOZA [Suspect]
     Active Substance: LIRAGLUTIDE
     Indication: TYPE 2 DIABETES MELLITUS
     Route: 058

REACTIONS (7)
  - Hypersensitivity [Unknown]
  - Migraine [Unknown]
  - Diarrhoea [Unknown]
  - Renal disorder [Unknown]
  - Vomiting [Unknown]
  - Lung disorder [Unknown]
  - Nausea [Unknown]

NARRATIVE: CASE EVENT DATE: 201605
